FAERS Safety Report 7932093 (Version 4)
Quarter: 2012Q4

REPORT INFORMATION
  Report Type: 
  Country: US (occurrence: US)
  Receive Date: 20110505
  Receipt Date: 20120829
  Transmission Date: 20130627
  Serious: Yes (Disabling, Other)
  Sender: FDA-Public Use
  Company Number: CHPA2011US06208

PATIENT
  Age: 61 Year
  Sex: Female

DRUGS (3)
  1. PREVACID 24HR 15MG [Suspect]
     Indication: GASTROOESOPHAGEAL REFLUX DISEASE
     Dosage: 15 mg, ONCE/SINGLE
     Route: 048
     Dates: start: 20110127, end: 20110127
  2. ANTIHYPERTENSIVE DRUGS [Concomitant]
     Indication: HYPERTENSION
  3. INSULIN [Concomitant]
     Indication: DIABETES MELLITUS

REACTIONS (11)
  - Physical disability [Unknown]
  - Wheelchair user [Not Recovered/Not Resolved]
  - Ankle fracture [Recovered/Resolved]
  - Dizziness [Recovered/Resolved]
  - Fall [Recovered/Resolved]
  - Off label use [Unknown]
  - Wrong technique in drug usage process [Unknown]
  - Incorrect drug administration duration [Unknown]
  - Product quality issue [None]
  - Product label issue [None]
  - Product packaging issue [None]
